FAERS Safety Report 7623209-2 (Version None)
Quarter: 2011Q3

REPORT INFORMATION
  Report Type: 
  Country: None (occurrence: None)
  Receive Date: 20110720
  Receipt Date: 20110718
  Transmission Date: 20111222
  Serious: Yes (Death)
  Sender: FDA-Public Use
  Company Number: PHHY2011VE64550

PATIENT
  Age: 65 Year
  Sex: Female

DRUGS (1)
  1. NEORAL [Suspect]
     Dosage: UNK

REACTIONS (2)
  - ANEURYSM RUPTURED [None]
  - HAEMORRHAGE [None]
